FAERS Safety Report 16837487 (Version 1)
Quarter: 2019Q3

REPORT INFORMATION
  Report Type: Spontaneous
  Country: CN (occurrence: CN)
  Receive Date: 20190923
  Receipt Date: 20190923
  Transmission Date: 20191005
  Serious: Yes (Other)
  Sender: FDA-Public Use
  Company Number: CN-BAXTER-2019BAX018228

PATIENT
  Age: 50 Year
  Sex: Female
  Weight: 72 kg

DRUGS (12)
  1. 0.9% SODIUM CHLORIDE INJECTION [Suspect]
     Active Substance: SODIUM CHLORIDE
     Indication: MEDICATION DILUTION
     Dosage: FOUR CHEMOTHERAPIES. ENDOXAN + NS
     Route: 042
  2. ENDOXAN [Suspect]
     Active Substance: CYCLOPHOSPHAMIDE
     Indication: BREAST CANCER FEMALE
     Dosage: FOUR CHEMOTHERAPIES. ENDOXAN + NS (NORMAL SALINE)
     Route: 042
  3. 0.9% SODIUM CHLORIDE INJECTION [Suspect]
     Active Substance: SODIUM CHLORIDE
     Dosage: FOUR CHEMOTHERAPIES. AISU + NS
     Route: 041
  4. 0.9% SODIUM CHLORIDE INJECTION [Suspect]
     Active Substance: SODIUM CHLORIDE
     Dosage: DOSE RE-INTRODUCED. ENDOXAN + NS
     Route: 042
  5. AISU [Suspect]
     Active Substance: DOCETAXEL
     Dosage: DOSE RE-INTRODUCED. AISU + NS
     Route: 041
  6. 0.9% SODIUM CHLORIDE INJECTION [Suspect]
     Active Substance: SODIUM CHLORIDE
     Dosage: DOSE RE-INTRODUCED. AISU + NS
     Route: 041
  7. ENDOXAN [Suspect]
     Active Substance: CYCLOPHOSPHAMIDE
     Dosage: FIFTH CHEMOTHERAPY. ENDOXAN  950 MG + NS 50 ML
     Route: 042
     Dates: start: 20190819, end: 20190819
  8. 0.9% SODIUM CHLORIDE INJECTION [Suspect]
     Active Substance: SODIUM CHLORIDE
     Dosage: FIFTH CHEMOTHERAPY. AISU 130 MG + NS 250 ML
     Route: 041
     Dates: start: 20190819, end: 20190819
  9. AISU [Suspect]
     Active Substance: DOCETAXEL
     Indication: BREAST CANCER FEMALE
     Dosage: FOUR CHEMOTHERAPIES. AISU + NS
     Route: 041
  10. AISU [Suspect]
     Active Substance: DOCETAXEL
     Dosage: FIFTH CHEMOTHERAPY. AISU 130 MG + NS 250 ML
     Route: 041
     Dates: start: 20190819, end: 20190819
  11. ENDOXAN [Suspect]
     Active Substance: CYCLOPHOSPHAMIDE
     Dosage: DOSE RE-INTRODUCED. ENDOXAN + NS
     Route: 042
  12. 0.9% SODIUM CHLORIDE INJECTION [Suspect]
     Active Substance: SODIUM CHLORIDE
     Dosage: FIFTH CHEMOTHERAPY. ENDOXAN 950 MG + NS 50 ML
     Route: 042
     Dates: start: 20190819, end: 20190819

REACTIONS (1)
  - Agranulocytosis [Recovered/Resolved]

NARRATIVE: CASE EVENT DATE: 20190826
